FAERS Safety Report 7861758-2 (Version None)
Quarter: 2011Q4

REPORT INFORMATION
  Report Type: 
  Country: None (occurrence: None)
  Receive Date: 20111027
  Receipt Date: 20111020
  Transmission Date: 20120403
  Serious: Yes (Other)
  Sender: FDA-Public Use
  Company Number: US-AMGEN-USASP2011054663

PATIENT
  Age: 55 Year
  Sex: Male

DRUGS (1)
  1. PROLIA [Suspect]
     Indication: METASTASES TO BONE
     Dosage: 120 MG, UNK
     Dates: start: 20111020

REACTIONS (1)
  - DRUG ADMINISTRATION ERROR [None]
